FAERS Safety Report 20155076 (Version 2)
Quarter: 2022Q1

REPORT INFORMATION
  Report Type: Other
  Country: DE (occurrence: None)
  Receive Date: 20211207
  Receipt Date: 20220315
  Transmission Date: 20220423
  Serious: Yes (Hospitalization)
  Sender: FDA-Public Use
  Company Number: DE-ROCHE-2965127

PATIENT
  Age: 34 Year
  Sex: Female
  Weight: 95 kg

DRUGS (4)
  1. UNSPECIFIED INGREDIENT [Suspect]
     Active Substance: UNSPECIFIED INGREDIENT
     Indication: Product used for unknown indication
     Route: 065
  2. XYLOMETAZOLINE HYDROCHLORIDE [Concomitant]
     Active Substance: XYLOMETAZOLINE HYDROCHLORIDE
     Dates: start: 20200323, end: 20200415
  3. ASPIRIN [Concomitant]
     Active Substance: ASPIRIN
     Dates: start: 20200326, end: 20200405
  4. ASPIRIN [Concomitant]
     Active Substance: ASPIRIN
     Dates: start: 20200406, end: 20201017

REACTIONS (2)
  - Bronchitis [Recovered/Resolved]
  - Maternal exposure during pregnancy [Unknown]

NARRATIVE: CASE EVENT DATE: 20211115
